FAERS Safety Report 4685696-1 (Version None)
Quarter: 2005Q2

REPORT INFORMATION
  Report Type: 
  Country: None (occurrence: None)
  Receive Date: 20050608
  Receipt Date: 20050531
  Transmission Date: 20051028
  Serious: Yes (Other)
  Sender: FDA-Public Use
  Company Number: BR-2005-009375

PATIENT
  Age: 44 Year
  Sex: Female

DRUGS (2)
  1. MIRENA [Suspect]
     Indication: MENOPAUSE
     Dosage: 20 UG/DAY, CONT, INTRA-UTERINE
     Route: 015
     Dates: start: 20050201
  2. ESTROGEN NOS (ESTROGEN NOS) [Suspect]
     Indication: MENOPAUSE
     Dosage: TRANSDERMAL
     Route: 062

REACTIONS (3)
  - DIZZINESS [None]
  - DUODENAL ULCER HAEMORRHAGE [None]
  - INSOMNIA [None]
